FAERS Safety Report 4818686-6 (Version None)
Quarter: 2005Q4

REPORT INFORMATION
  Report Type: 
  Country: None (occurrence: None)
  Receive Date: 20051102
  Receipt Date: 20051026
  Transmission Date: 20060501
  Serious: Yes (Other)
  Sender: FDA-Public Use
  Company Number: US-MERCK-0510USA09460

PATIENT
  Sex: Male

DRUGS (1)
  1. VIOXX [Suspect]
     Route: 048
     Dates: start: 20010110, end: 20040923

REACTIONS (3)
  - CARDIAC DISORDER [None]
  - CORONARY ARTERY SURGERY [None]
  - POLYTRAUMATISM [None]
